FAERS Safety Report 7742195-8 (Version None)
Quarter: 2011Q3

REPORT INFORMATION
  Report Type: 
  Country: None (occurrence: None)
  Receive Date: 20110912
  Receipt Date: 20110908
  Transmission Date: 20111222
  Serious: Yes (Death, Other)
  Sender: FDA-Public Use
  Company Number: PHHY2011BR80303

PATIENT
  Sex: Male

DRUGS (5)
  1. CAPTOPRIL [Concomitant]
     Indication: HYPERTENSION
  2. FLUIMUCIL [Concomitant]
     Indication: PRODUCTIVE COUGH
  3. FORMOTEROL FUMARATE [Suspect]
     Indication: EMPHYSEMA
     Dosage: 1 CAPSULE OF EACH TREATMENT TWICE DAILY
  4. AEROFLUX [Concomitant]
     Indication: PRODUCTIVE COUGH
  5. ACEBROFYLLINE [Concomitant]
     Indication: PRODUCTIVE COUGH

REACTIONS (4)
  - SALIVARY GLAND CANCER [None]
  - CANCER PAIN [None]
  - DEPRESSION [None]
  - ASTHENIA [None]
